FAERS Safety Report 22160656 (Version 1)
Quarter: 2023Q1

REPORT INFORMATION
  Report Type: Spontaneous
  Country: JP (occurrence: JP)
  Receive Date: 20230331
  Receipt Date: 20230331
  Transmission Date: 20230418
  Serious: Yes (Other)
  Sender: FDA-Public Use
  Company Number: JP-GUERBETG_JAPAN-JP-20230026

PATIENT
  Age: 75 Year
  Sex: Female

DRUGS (2)
  1. LIPIODOL [Suspect]
     Active Substance: ETHIODIZED OIL
     Indication: Portal vein embolisation
  2. ALCOHOL [Suspect]
     Active Substance: ALCOHOL
     Indication: Portal vein embolisation

REACTIONS (2)
  - Portal vein thrombosis [Recovered/Resolved]
  - Product use in unapproved indication [Recovered/Resolved]
